FAERS Safety Report 5586532-1 (Version None)
Quarter: 2008Q1

REPORT INFORMATION
  Report Type: 
  Country: None (occurrence: None)
  Receive Date: 20080110
  Receipt Date: 20080104
  Transmission Date: 20080703
  Serious: Yes (Hospitalization, Other)
  Sender: FDA-Public Use
  Company Number: GB-JNJFOC-20071203602

PATIENT
  Sex: Male
  Weight: 98 kg

DRUGS (14)
  1. REMICADE [Suspect]
     Indication: RHEUMATOID ARTHRITIS
     Route: 042
  2. BISOPROLOL [Concomitant]
  3. DIGOXIN [Concomitant]
  4. DOXAZOSIN [Concomitant]
  5. FINASTERIDE [Concomitant]
  6. FUROSEMIDE [Concomitant]
  7. GLUCOSAMINE [Concomitant]
  8. INSULIN [Concomitant]
  9. LANSOPRAZOLE [Concomitant]
  10. LERCANIDIPINE [Concomitant]
  11. LORATADINE [Concomitant]
  12. PERINDOPRIL [Concomitant]
  13. VOLTAREN [Concomitant]
  14. WARFARIN SODIUM [Concomitant]

REACTIONS (4)
  - ANAEMIA [None]
  - BONE MARROW DISORDER [None]
  - CARDIAC FAILURE CONGESTIVE [None]
  - RENAL FAILURE [None]
